FAERS Safety Report 5724737-7 (Version None)
Quarter: 2008Q2

REPORT INFORMATION
  Report Type: 
  Country: None (occurrence: None)
  Receive Date: 20080430
  Receipt Date: 20080430
  Transmission Date: 20081010
  Serious: No
  Sender: FDA-Public Use
  Company Number: None

PATIENT
  Sex: Female

DRUGS (1)
  1. CREST PRO HEALTH RINSE [Suspect]
     Indication: DENTAL DISORDER PROPHYLAXIS
     Dosage: MOUTH ONCE A DAY
     Dates: start: 20071201, end: 20080101

REACTIONS (2)
  - DYSGEUSIA [None]
  - TOOTH DISCOLOURATION [None]
